FAERS Safety Report 9701328 (Version 2)
Quarter: 2015Q3

REPORT INFORMATION
  Report Type: Spontaneous
  Country: US (occurrence: US)
  Receive Date: 20131121
  Receipt Date: 20150803
  Transmission Date: 20151125
  Serious: Yes (Hospitalization)
  Sender: FDA-Public Use
  Company Number: US-GILEAD-2008-0016531

PATIENT
  Age: 73 Year
  Sex: Male
  Weight: 65.77 kg

DRUGS (10)
  1. VENTAVIS [Concomitant]
     Active Substance: ILOPROST
     Route: 055
  2. INSPRA [Concomitant]
     Active Substance: EPLERENONE
     Route: 048
  3. COMBIVENT [Concomitant]
     Active Substance: ALBUTEROL SULFATE\IPRATROPIUM BROMIDE
     Route: 055
  4. PROTONIX [Concomitant]
     Active Substance: PANTOPRAZOLE SODIUM
     Route: 048
  5. DIGOXIN. [Concomitant]
     Active Substance: DIGOXIN
     Route: 048
  6. LETAIRIS [Suspect]
     Active Substance: AMBRISENTAN
     Indication: PULMONARY ARTERIAL HYPERTENSION
     Route: 048
     Dates: start: 20080121
  7. COUMADIN [Concomitant]
     Active Substance: WARFARIN SODIUM
     Route: 048
  8. OXYGEN. [Concomitant]
     Active Substance: OXYGEN
     Route: 055
  9. LASIX [Concomitant]
     Active Substance: FUROSEMIDE
     Route: 048
  10. ALLOPURINOL. [Concomitant]
     Active Substance: ALLOPURINOL
     Route: 048

REACTIONS (1)
  - Oedema [Unknown]
